FAERS Safety Report 14560789 (Version 1)
Quarter: 2018Q1

REPORT INFORMATION
  Report Type: Spontaneous
  Country: GB (occurrence: GB)
  Receive Date: 20180222
  Receipt Date: 20180222
  Transmission Date: 20180509
  Serious: Yes (Other)
  Sender: FDA-Public Use
  Company Number: GB-AMGEN-GBRSP2018021859

PATIENT
  Sex: Male

DRUGS (1)
  1. IMLYGIC [Suspect]
     Active Substance: TALIMOGENE LAHERPAREPVEC
     Indication: MALIGNANT MELANOMA
     Dosage: UNK
     Route: 065

REACTIONS (5)
  - Influenza like illness [Unknown]
  - Tumour haemorrhage [Unknown]
  - Injection site pain [Unknown]
  - Chills [Unknown]
  - Pyrexia [Unknown]
